FAERS Safety Report 17366438 (Version 1)
Quarter: 2020Q1

REPORT INFORMATION
  Report Type: Spontaneous
  Country: IN (occurrence: IN)
  Receive Date: 20200204
  Receipt Date: 20200204
  Transmission Date: 20200409
  Serious: Yes (Other)
  Sender: FDA-Public Use
  Company Number: IN-JNJFOC-20200138742

PATIENT
  Sex: Male

DRUGS (2)
  1. PREDNISONE. [Suspect]
     Active Substance: PREDNISONE
     Indication: PROSTATE CANCER METASTATIC
     Route: 065
  2. ABIRATERONE ACETATE. [Suspect]
     Active Substance: ABIRATERONE ACETATE
     Indication: PROSTATE CANCER METASTATIC
     Route: 048

REACTIONS (10)
  - Hypertension [Unknown]
  - Nausea [Unknown]
  - Vomiting [Unknown]
  - Transaminases increased [Unknown]
  - Thrombocytopenia [Unknown]
  - Hyperbilirubinaemia [Unknown]
  - Fluid retention [Unknown]
  - Cardiotoxicity [Unknown]
  - Fatigue [Unknown]
  - Hypokalaemia [Unknown]
